FAERS Safety Report 9382162 (Version 2)
Quarter: 2013Q3

REPORT INFORMATION
  Report Type: Spontaneous
  Country: JP (occurrence: JP)
  Receive Date: 20130703
  Receipt Date: 20130719
  Transmission Date: 20140515
  Serious: Yes (Other)
  Sender: FDA-Public Use
  Company Number: JP-ASTRAZENECA-2013SE49391

PATIENT
  Age: 72 Year
  Sex: Female

DRUGS (3)
  1. CRESTOR [Suspect]
     Dosage: DOSE UNKNOWN
     Route: 048
  2. DEPAKENE-R [Concomitant]
     Dosage: DOSE UNKNOWN
     Route: 065
  3. MULTIPLE CONCOMITANT DRUGS [Concomitant]

REACTIONS (1)
  - Stevens-Johnson syndrome [Unknown]
